FAERS Safety Report 5626769-6 (Version None)
Quarter: 2008Q1

REPORT INFORMATION
  Report Type: 
  Country: None (occurrence: None)
  Receive Date: 20080212
  Receipt Date: 20080129
  Transmission Date: 20080703
  Serious: Yes (Hospitalization)
  Sender: FDA-Public Use
  Company Number: CHPA2008US01817

PATIENT
  Age: 17 Year
  Sex: Female

DRUGS (2)
  1. TRIAMINIC SRT [Suspect]
     Indication: NASOPHARYNGITIS
     Dosage: ORAL
     Route: 048
     Dates: start: 20080101
  2. ADVIL [Suspect]
     Indication: MIGRAINE
     Dosage: 5 TABLETS
     Dates: start: 20080101

REACTIONS (3)
  - FATIGUE [None]
  - INTENTIONAL DRUG MISUSE [None]
  - SOMNOLENCE [None]
